FAERS Safety Report 17416544 (Version 1)
Quarter: 2020Q1

REPORT INFORMATION
  Report Type: Spontaneous
  Country: US (occurrence: US)
  Receive Date: 20200214
  Receipt Date: 20200214
  Transmission Date: 20200409
  Serious: Yes (Hospitalization)
  Sender: FDA-Public Use
  Company Number: US-PERRIGO-20US002133

PATIENT
  Sex: Male

DRUGS (1)
  1. IBUPROFEN-PHENYLEPHRINE [Suspect]
     Active Substance: IBUPROFEN\PHENYLEPHRINE HYDROCHLORIDE
     Indication: NASAL CONGESTION
     Dosage: UNKNOWN, UNKNOWN
     Route: 048

REACTIONS (3)
  - Drug ineffective [Unknown]
  - Hypoaesthesia [Unknown]
  - Cerebrovascular accident [Unknown]
